FAERS Safety Report 7355410-X (Version None)
Quarter: 2011Q1

REPORT INFORMATION
  Report Type: 
  Country: None (occurrence: None)
  Receive Date: 20110316
  Receipt Date: 20110315
  Transmission Date: 20110831
  Serious: Yes (Other)
  Sender: FDA-Public Use
  Company Number: A0918277A

PATIENT
  Age: 40 Year
  Sex: Female

DRUGS (3)
  1. GABAPENTIN [Concomitant]
  2. ALLI [Suspect]
     Indication: WEIGHT LOSS DIET
     Route: 048
     Dates: start: 20110101, end: 20110201
  3. PHENYTOIN [Concomitant]

REACTIONS (2)
  - CONVULSION [None]
  - CONDITION AGGRAVATED [None]
